FAERS Safety Report 6900593-6 (Version None)
Quarter: 2010Q3

REPORT INFORMATION
  Report Type: 
  Country: None (occurrence: None)
  Receive Date: 20100730
  Receipt Date: 20100712
  Transmission Date: 20110219
  Serious: Yes (Death, Hospitalization)
  Sender: FDA-Public Use
  Company Number: MSTR-NO-1007S-0263

PATIENT
  Age: 77 Year
  Sex: Male

DRUGS (1)
  1. METASTRON [Suspect]
     Indication: METASTATIC PAIN
     Dosage: 3.8 ML, SINGLE DOSE, I.V.
     Dates: start: 20080710, end: 20080710

REACTIONS (9)
  - BLOOD UREA INCREASED [None]
  - DISSEMINATED INTRAVASCULAR COAGULATION [None]
  - DYSPNOEA [None]
  - GASTROINTESTINAL HAEMORRHAGE [None]
  - HAEMATURIA [None]
  - HAEMOGLOBIN DECREASED [None]
  - MOVEMENT DISORDER [None]
  - OESOPHAGEAL CANDIDIASIS [None]
  - PLATELET COUNT DECREASED [None]
